FAERS Safety Report 8576001-9 (Version None)
Quarter: 2012Q3

REPORT INFORMATION
  Report Type: 
  Country: None (occurrence: None)
  Receive Date: 20120807
  Receipt Date: 20120730
  Transmission Date: 20120928
  Serious: Yes (Other)
  Sender: FDA-Public Use
  Company Number: US-UCBSA-062955

PATIENT
  Age: 25 Year
  Sex: Female

DRUGS (1)
  1. CIMZIA [Suspect]
     Indication: CROHN'S DISEASE
     Dosage: 2X2 INJECTIONS 2 WEEKS APART
     Dates: start: 20110622, end: 20110701

REACTIONS (2)
  - BACK PAIN [None]
  - VIITH NERVE PARALYSIS [None]
